FAERS Safety Report 8756628 (Version 2)
Quarter: 2012Q4

REPORT INFORMATION
  Report Type: Spontaneous
  Country: ES (occurrence: None)
  Receive Date: 20120813
  Receipt Date: 20120831
  Transmission Date: 20130627
  Serious: Yes (Hospitalization)
  Sender: FDA-Public Use
  Company Number: 2012NA000077

PATIENT
  Age: 38 Year
  Sex: Female

DRUGS (6)
  1. DICLOFENAC [Suspect]
     Indication: PAIN
     Route: 030
  2. PETHIDINE [Concomitant]
  3. BUSCAPINA [Concomitant]
  4. ACETAMINOPHEN [Concomitant]
  5. METAMIZOLE [Concomitant]
  6. DIAZEPAM [Concomitant]

REACTIONS (6)
  - Oligohydramnios [None]
  - Exposure during pregnancy [None]
  - Hypertension [None]
  - Proteinuria [None]
  - Pre-eclampsia [None]
  - Induced labour [None]
